FAERS Safety Report 9310580 (Version 1)
Quarter: 2013Q2

REPORT INFORMATION
  Report Type: Spontaneous
  Country: US (occurrence: US)
  Receive Date: 20130527
  Receipt Date: 20130527
  Transmission Date: 20140414
  Serious: No
  Sender: FDA-Public Use
  Company Number: US-PFIZER INC-2013159012

PATIENT
  Age: 57 Year
  Sex: Female
  Weight: 96 kg

DRUGS (5)
  1. LEVOXYL [Suspect]
     Indication: HYPOTHYROIDISM
     Dosage: UNK
     Route: 048
  2. LEVOTHYROXINE SODIUM [Suspect]
     Indication: HYPOTHYROIDISM
     Dosage: UNK
     Dates: start: 2002
  3. SYNTHROID [Suspect]
     Indication: HYPOTHYROIDISM
     Dosage: UNK
     Dates: start: 2002
  4. UNITHROID [Suspect]
     Indication: HYPOTHYROIDISM
     Dosage: UNK
     Dates: start: 2002
  5. ESTRACE VAGINAL CREAM [Concomitant]
     Indication: HORMONE REPLACEMENT THERAPY
     Dosage: 2 G, DAILY
     Route: 067

REACTIONS (8)
  - Drug intolerance [Unknown]
  - Malaise [Unknown]
  - Abdominal discomfort [Unknown]
  - Palpitations [Unknown]
  - Mood swings [Unknown]
  - Thyroid function test abnormal [Unknown]
  - Nervousness [Unknown]
  - Feeling jittery [Unknown]
